FAERS Safety Report 22310685 (Version 1)
Quarter: 2023Q2

REPORT INFORMATION
  Report Type: Spontaneous
  Country: PT (occurrence: PT)
  Receive Date: 20230511
  Receipt Date: 20230511
  Transmission Date: 20230722
  Serious: Yes (Other)
  Sender: FDA-Public Use
  Company Number: None

PATIENT
  Sex: Female
  Weight: 60 kg

DRUGS (17)
  1. AMIODARONE [Interacting]
     Active Substance: AMIODARONE
     Indication: Cardiovascular disorder
     Dosage: 200 MG, QD,1 TABLET FOR BREAKFAST
     Route: 048
  2. GILOTRIF [Interacting]
     Active Substance: AFATINIB
     Indication: Lung neoplasm malignant
     Dosage: 40 MILLIGRAM, QD, 1XDAY
     Route: 048
     Dates: start: 20230321, end: 20230406
  3. GILOTRIF [Interacting]
     Active Substance: AFATINIB
     Dosage: 30 MILLIGRAM, QD, 1XQD
     Route: 048
  4. APIXABAN [Concomitant]
     Active Substance: APIXABAN
     Dosage: 5 MG, BID, 1 TABLET FOR BREAKFAST AND DINNER
     Route: 065
  5. AMLODIPINE [Concomitant]
     Active Substance: AMLODIPINE BESYLATE
     Dosage: 5 MG, QD, 1 TABLET FOR DINNER
     Route: 065
  6. PERINDOPRIL [Concomitant]
     Active Substance: PERINDOPRIL
     Dosage: 5 MG, QD, 1 TABLET FOR BREAKFAST
     Route: 065
  7. ONDANSETRON [Concomitant]
     Active Substance: ONDANSETRON
     Dosage: 8 MG IN SOS MAX OF 8/8H (8H/16H/24H
     Route: 065
  8. CLONAZEPAM [Concomitant]
     Active Substance: CLONAZEPAM
     Dosage: UNK
     Route: 065
  9. MEGESTROL ACETATE [Concomitant]
     Active Substance: MEGESTROL ACETATE
     Dosage: 160MG, BID, 1 TABLET BEFORE LUNCH AND DINNER
     Route: 048
  10. OMEPRAZOLE [Concomitant]
     Active Substance: OMEPRAZOLE
     Dosage: 20MG,QD,1 TAB ON EMPTY STOMACH BEFORE DEXAMETHASE
     Route: 048
  11. MORPHINE HYDROCHLORIDE [Concomitant]
     Active Substance: MORPHINE HYDROCHLORIDE
     Dosage: UNK
     Route: 065
  12. IBANDRONIC ACID [Concomitant]
     Active Substance: IBANDRONIC ACID
     Dosage: 50MG,QD,1 TAB IN FASTING WITH A LARGE GLASS OF WA
     Route: 065
  13. DEXAMETHASONE [Concomitant]
     Active Substance: DEXAMETHASONE
     Dosage: UNK
     Route: 065
  14. FENTANYL [Concomitant]
     Active Substance: FENTANYL
     Dosage: 12.5MCG/H, 1 DRESSING EVERY 3 DAYS
     Route: 065
  15. TRAZODONE [Concomitant]
     Active Substance: TRAZODONE HYDROCHLORIDE
     Dosage: 50 MG, QD, 1/2CP BEFORE BEDTIME
     Route: 065
  16. SODIUM PICOSULFATE [Concomitant]
     Active Substance: SODIUM PICOSULFATE
     Dosage: IN SOS (IF CONSTIPATION }48H) - 10 DROPS AT NIGHT
     Route: 065
  17. MIRTAZAPINE [Concomitant]
     Active Substance: MIRTAZAPINE
     Dosage: 30 MG, QD, 2 CP BEFORE BEDTIME
     Route: 065

REACTIONS (4)
  - Diarrhoea [Recovered/Resolved]
  - Nausea [Recovered/Resolved]
  - Vomiting [Recovered/Resolved]
  - Drug interaction [Unknown]

NARRATIVE: CASE EVENT DATE: 20230331
